FAERS Safety Report 18204033 (Version 1)
Quarter: 2020Q3

REPORT INFORMATION
  Report Type: Spontaneous
  Country: ES (occurrence: ES)
  Receive Date: 20200827
  Receipt Date: 20200827
  Transmission Date: 20201103
  Serious: Yes (Death, Life-Threatening, Other)
  Sender: FDA-Public Use
  Company Number: ES-AZURITY PHARMACEUTICALS, INC.-2020AZY00061

PATIENT
  Age: 59 Year
  Sex: Male

DRUGS (4)
  1. CYTARABINE. [Concomitant]
     Active Substance: CYTARABINE
     Route: 037
  2. UNSPECIFIED GLUCOCORTICOIDS [Concomitant]
     Route: 037
  3. METHOTREXATE. [Suspect]
     Active Substance: METHOTREXATE
     Indication: ACUTE LYMPHOCYTIC LEUKAEMIA
     Route: 037
  4. METHOTREXATE. [Suspect]
     Active Substance: METHOTREXATE
     Indication: ANGIOCENTRIC LYMPHOMA

REACTIONS (3)
  - Immunosuppression [Fatal]
  - Myelopathy [Unknown]
  - Leukoencephalopathy [Unknown]
